FAERS Safety Report 23028211 (Version 1)
Quarter: 2023Q4

REPORT INFORMATION
  Report Type: Spontaneous
  Country: CA (occurrence: CA)
  Receive Date: 20231004
  Receipt Date: 20231004
  Transmission Date: 20240109
  Serious: Yes (Other)
  Sender: FDA-Public Use
  Company Number: CA-PFIZER INC-202300307864

PATIENT
  Age: 69 Year
  Sex: Male

DRUGS (2)
  1. TOVIAZ [Suspect]
     Active Substance: FESOTERODINE FUMARATE
     Dosage: 4.0 MG
  2. OXYBUTYNIN [Suspect]
     Active Substance: OXYBUTYNIN

REACTIONS (3)
  - Catheter placement [Unknown]
  - Nervous system disorder [Unknown]
  - Urinary retention [Unknown]
